FAERS Safety Report 17271159 (Version 5)
Quarter: 2021Q2

REPORT INFORMATION
  Report Type: Report from Study
  Country: US (occurrence: US)
  Receive Date: 20200115
  Receipt Date: 20210422
  Transmission Date: 20210716
  Serious: No
  Sender: FDA-Public Use
  Company Number: NVSC2020US006199

PATIENT
  Sex: Female

DRUGS (1)
  1. AFINITOR [Suspect]
     Active Substance: EVEROLIMUS
     Dosage: 10 MG, QD
     Route: 048
     Dates: start: 20191127

REACTIONS (9)
  - Diarrhoea [Unknown]
  - Feeding disorder [Not Recovered/Not Resolved]
  - Product dose omission issue [Unknown]
  - Nasopharyngitis [Unknown]
  - Abdominal discomfort [Unknown]
  - Asthenia [Unknown]
  - Stomatitis [Unknown]
  - Weight decreased [Unknown]
  - Fatigue [Unknown]
